FAERS Safety Report 20855888 (Version 1)
Quarter: 2022Q2

REPORT INFORMATION
  Report Type: Spontaneous
  Country: US (occurrence: US)
  Receive Date: 20220520
  Receipt Date: 20220520
  Transmission Date: 20220721
  Serious: No
  Sender: FDA-Public Use
  Company Number: US-PFIZER INC-202200722021

PATIENT
  Age: 57 Year
  Sex: Female
  Weight: 56.7 kg

DRUGS (1)
  1. LATANOPROST [Suspect]
     Active Substance: LATANOPROST
     Indication: Glaucoma
     Dosage: 1 DROP IN EACH EYE
     Route: 047
     Dates: start: 20220512

REACTIONS (3)
  - Eye irritation [Unknown]
  - Dry eye [Unknown]
  - Erythema [Unknown]

NARRATIVE: CASE EVENT DATE: 20220501
